FAERS Safety Report 10015977 (Version 1)
Quarter: 2014Q1

REPORT INFORMATION
  Report Type: Report from Study
  Country: US (occurrence: US)
  Receive Date: 20140317
  Receipt Date: 20140317
  Transmission Date: 20141002
  Serious: Yes (Death, Other)
  Sender: FDA-Public Use
  Company Number: US-BAXTER-2014BAX013116

PATIENT
  Age: 38 Year
  Sex: Male

DRUGS (4)
  1. ENDOXAN [Suspect]
     Indication: PULMONARY ALVEOLAR HAEMORRHAGE
     Route: 048
  2. ENDOXAN [Suspect]
     Indication: ANTIPHOSPHOLIPID SYNDROME
  3. AZATHIOPRINE [Suspect]
     Indication: PULMONARY ALVEOLAR HAEMORRHAGE
     Route: 048
  4. AZATHIOPRINE [Suspect]
     Indication: ANTIPHOSPHOLIPID SYNDROME

REACTIONS (3)
  - Condition aggravated [Unknown]
  - Disease complication [Fatal]
  - Pulmonary alveolar haemorrhage [Unknown]
